FAERS Safety Report 5579205-2 (Version None)
Quarter: 2008Q1

REPORT INFORMATION
  Report Type: 
  Country: None (occurrence: None)
  Receive Date: 20080102
  Receipt Date: 20071227
  Transmission Date: 20080703
  Serious: Yes (Other)
  Sender: FDA-Public Use
  Company Number: B0500993A

PATIENT
  Age: 12 Year
  Sex: Male

DRUGS (3)
  1. RELENZA [Suspect]
     Indication: INFLUENZA
     Dosage: 10MG TWICE PER DAY
     Route: 055
     Dates: start: 20071218, end: 20071222
  2. MUCODYNE [Concomitant]
     Route: 048
  3. MEDICON [Concomitant]
     Route: 048

REACTIONS (2)
  - DELIRIUM [None]
  - DISORIENTATION [None]
